FAERS Safety Report 8622024-0 (Version None)
Quarter: 2012Q3

REPORT INFORMATION
  Report Type: 
  Country: None (occurrence: None)
  Receive Date: 20120823
  Receipt Date: 20120823
  Transmission Date: 20120928
  Serious: Yes (Hospitalization, Disabling, Other)
  Sender: FDA-Public Use
  Company Number: None

PATIENT
  Sex: Male
  Weight: 69.8539 kg

DRUGS (3)
  1. SUBOXONE [Suspect]
     Dosage: SUBLINGUAL TID
     Route: 060
     Dates: start: 20110921, end: 20111112
  2. IMURAN [Concomitant]
  3. PREDNISOLONE [Concomitant]

REACTIONS (4)
  - SMALL INTESTINAL OBSTRUCTION [None]
  - PYREXIA [None]
  - WHITE BLOOD CELL COUNT INCREASED [None]
  - FATIGUE [None]
